FAERS Safety Report 11754955 (Version 2)
Quarter: 2015Q4

REPORT INFORMATION
  Report Type: Spontaneous
  Country: JP (occurrence: JP)
  Receive Date: 20151119
  Receipt Date: 20151229
  Transmission Date: 20160304
  Serious: Yes (Death)
  Sender: FDA-Public Use
  Company Number: JP-JNJFOC-20151113412

PATIENT
  Age: 28 Year
  Sex: Female

DRUGS (6)
  1. XEPLION [Suspect]
     Active Substance: PALIPERIDONE PALMITATE
     Indication: SCHIZOPHRENIA
     Route: 030
     Dates: start: 20151029, end: 20151029
  2. ZYPREXA [Concomitant]
     Active Substance: OLANZAPINE
     Indication: SCHIZOPHRENIA
     Route: 030
     Dates: start: 20151015, end: 20151018
  3. ZYPREXA [Concomitant]
     Active Substance: OLANZAPINE
     Indication: SCHIZOPHRENIA
     Dosage: TWICE  DAILY
     Route: 030
     Dates: start: 20151019, end: 20151028
  4. INVEGA [Suspect]
     Active Substance: PALIPERIDONE
     Indication: SCHIZOPHRENIA
     Route: 048
     Dates: start: 20151023, end: 20151028
  5. CEFMETAZON [Concomitant]
     Active Substance: CEFMETAZOLE SODIUM
     Indication: PNEUMONIA
     Route: 065
     Dates: start: 20151102, end: 20151106
  6. NITRAZEPAM [Concomitant]
     Active Substance: NITRAZEPAM
     Indication: INSOMNIA
     Route: 048
     Dates: start: 20151007, end: 20151110

REACTIONS (6)
  - Extrapyramidal disorder [Not Recovered/Not Resolved]
  - Treatment noncompliance [Unknown]
  - Multi-organ failure [Fatal]
  - Cardio-respiratory arrest [Fatal]
  - Sepsis [Fatal]
  - Pneumonia [Fatal]

NARRATIVE: CASE EVENT DATE: 2015
